FAERS Safety Report 7046749-6 (Version None)
Quarter: 2010Q4

REPORT INFORMATION
  Report Type: 
  Country: None (occurrence: None)
  Receive Date: 20101015
  Receipt Date: 20101004
  Transmission Date: 20110411
  Serious: Yes (Other)
  Sender: FDA-Public Use
  Company Number: CA-JNJFOC-20100100569

PATIENT
  Age: 29 Year
  Sex: Male
  Weight: 70 kg

DRUGS (4)
  1. REMICADE [Suspect]
     Indication: CROHN'S DISEASE
     Route: 042
  2. IMURAN [Concomitant]
  3. ATIVAN [Concomitant]
     Indication: BIPOLAR DISORDER
  4. LAMOTRIGINE [Concomitant]
     Indication: BIPOLAR DISORDER

REACTIONS (3)
  - HYPOAESTHESIA [None]
  - TREMOR [None]
  - VISION BLURRED [None]
